FAERS Safety Report 6714889-4 (Version None)
Quarter: 2010Q2

REPORT INFORMATION
  Report Type: 
  Country: None (occurrence: None)
  Receive Date: 20100507
  Receipt Date: 20100426
  Transmission Date: 20101027
  Serious: Yes (Disabling, Other)
  Sender: FDA-Public Use
  Company Number: US-BAYER-201020579NA

PATIENT
  Age: 25 Year
  Sex: Female

DRUGS (1)
  1. MIRENA [Suspect]
     Indication: CONTRACEPTION
     Dosage: INSERTED MAY OR JUNE 2009 - CONSUMER WAS UNABLE TO FEEL TOR THE THREADS ON THE MIRENA
     Route: 015
     Dates: start: 20090101

REACTIONS (7)
  - ABDOMINAL PAIN [None]
  - BREAST TENDERNESS [None]
  - DEVICE DISLOCATION [None]
  - DYSPAREUNIA [None]
  - NIPPLE PAIN [None]
  - PAIN [None]
  - VAGINAL DISCHARGE [None]
